FAERS Safety Report 6439929-1 (Version None)
Quarter: 2009Q4

REPORT INFORMATION
  Report Type: 
  Country: None (occurrence: None)
  Receive Date: 20091113
  Receipt Date: 20091104
  Transmission Date: 20100525
  Serious: Yes (Hospitalization)
  Sender: FDA-Public Use
  Company Number: BR-PFIZER INC-2009218401

PATIENT
  Age: 85 Year
  Sex: Female
  Weight: 61 kg

DRUGS (6)
  1. CELEBRA [Suspect]
     Indication: PAIN
     Dosage: 200 MG, UNK
     Route: 048
     Dates: start: 20090501, end: 20090601
  2. CELEBRA [Suspect]
     Indication: BACK PAIN
  3. CELEBRA [Suspect]
     Indication: OSTEOARTHRITIS
  4. LOSARTAN POTASSIUM [Concomitant]
     Dosage: UNK
  5. BUSCOPAN [Concomitant]
     Dosage: UNK
  6. DIPIRONA [Concomitant]
     Dosage: UNK

REACTIONS (2)
  - DYSENTERY [None]
  - VOMITING [None]
